FAERS Safety Report 7153827-X (Version None)
Quarter: 2010Q4

REPORT INFORMATION
  Report Type: 
  Country: None (occurrence: None)
  Receive Date: 20101213
  Receipt Date: 20101029
  Transmission Date: 20110411
  Serious: No
  Sender: FDA-Public Use
  Company Number: US-ABBOTT-10P-163-0682717-00

PATIENT
  Sex: Female
  Weight: 93.07 kg

DRUGS (2)
  1. MERIDIA [Suspect]
     Indication: OVERWEIGHT
     Dates: start: 20100212, end: 20100501
  2. NORVASC [Concomitant]
     Indication: HYPERTENSION

REACTIONS (1)
  - CHEST PAIN [None]
